FAERS Safety Report 23731725 (Version 1)
Quarter: 2024Q2

REPORT INFORMATION
  Report Type: Spontaneous
  Country: JP (occurrence: JP)
  Receive Date: 20240411
  Receipt Date: 20240411
  Transmission Date: 20240716
  Serious: Yes (Other)
  Sender: FDA-Public Use
  Company Number: JP-MYLANLABS-2024M1030519

PATIENT
  Age: 73 Year
  Sex: Female

DRUGS (2)
  1. MAGNESIUM OXIDE [Suspect]
     Active Substance: MAGNESIUM OXIDE
     Indication: Product used for unknown indication
     Dosage: UNK
     Route: 048
  2. SODIUM PICOSULFATE [Concomitant]
     Active Substance: SODIUM PICOSULFATE
     Indication: Premedication
     Dosage: UNK
     Route: 048

REACTIONS (3)
  - Intestinal ischaemia [Recovered/Resolved]
  - Altered state of consciousness [Unknown]
  - Hypermagnesaemia [Unknown]
